FAERS Safety Report 19054700 (Version 1)
Quarter: 2021Q1

REPORT INFORMATION
  Report Type: Spontaneous
  Country: FR (occurrence: FR)
  Receive Date: 20210325
  Receipt Date: 20210325
  Transmission Date: 20210420
  Serious: Yes (Other)
  Sender: FDA-Public Use
  Company Number: FR-SUN PHARMACEUTICAL INDUSTRIES LTD-2021RR-287729

PATIENT
  Age: 33 Year
  Sex: Female

DRUGS (2)
  1. COMPLEMENT ALIMENTAIRE [Suspect]
     Active Substance: DIETARY SUPPLEMENT
     Indication: PROPHYLAXIS
     Dosage: UNK
     Route: 048
     Dates: start: 2020
  2. PARACETAMOL [Suspect]
     Active Substance: ACETAMINOPHEN
     Indication: PAIN
     Dosage: UNK
     Route: 048

REACTIONS (1)
  - Gastroenteritis eosinophilic [Not Recovered/Not Resolved]

NARRATIVE: CASE EVENT DATE: 202012
